FAERS Safety Report 6106134-8 (Version None)
Quarter: 2009Q1

REPORT INFORMATION
  Report Type: 
  Country: None (occurrence: None)
  Receive Date: 20090306
  Receipt Date: 20090217
  Transmission Date: 20090719
  Serious: No
  Sender: FDA-Public Use
  Company Number: AT-EISAI MEDICAL RESEARCH-E2080-00116-SPO-AT

PATIENT
  Age: 7 Year
  Sex: Male
  Weight: 22 kg

DRUGS (2)
  1. INOVELON [Suspect]
     Indication: EPILEPSY
     Route: 048
     Dates: start: 20090113, end: 20090126
  2. INOVELON [Suspect]
     Route: 048
     Dates: start: 20090126, end: 20090130

REACTIONS (1)
  - LIVER FUNCTION TEST ABNORMAL [None]
